FAERS Safety Report 16725496 (Version 1)
Quarter: 2019Q4

REPORT INFORMATION
  Report Type: Spontaneous
  Country: US (occurrence: US)
  Receive Date: 20190820
  Receipt Date: 20190820
  Transmission Date: 20200122
  Serious: Yes (Hospitalization)
  Sender: FDA-Public Use
  Company Number: None

PATIENT
  Age: 52 Year
  Sex: Female

DRUGS (4)
  1. XELJANZ [Suspect]
     Active Substance: TOFACITINIB CITRATE
     Indication: RHEUMATOID ARTHRITIS
     Route: 048
     Dates: start: 20180918
  2. ELIQUIS TAB 5 MG [Concomitant]
  3. MORPHINE SUL TAB 15 MG ER [Concomitant]
  4. OXYCODONE TAB 15 MG [Concomitant]

REACTIONS (3)
  - Therapy cessation [None]
  - Inability to afford medication [None]
  - Thrombosis [None]
